FAERS Safety Report 15506457 (Version 1)
Quarter: 2018Q4

REPORT INFORMATION
  Report Type: Report from Study
  Country: MX (occurrence: MX)
  Receive Date: 20181016
  Receipt Date: 20181016
  Transmission Date: 20190205
  Serious: Yes (Other)
  Sender: FDA-Public Use
  Company Number: PHHY2018MX091189

PATIENT
  Age: 72 Year
  Sex: Female
  Weight: 63 kg

DRUGS (2)
  1. CO-DIOVAN [Suspect]
     Active Substance: HYDROCHLOROTHIAZIDE\VALSARTAN
     Indication: HYPERTENSION
     Dosage: 1 DF, QD (VALSARTAN 160MG/ HYDROCHLOROTHIAZIDE 12.5MG) 4 YEARS AGO
     Route: 048
  2. AKSPRI [Suspect]
     Active Substance: METFORMIN HYDROCHLORIDE
     Indication: DIABETES MELLITUS
     Dosage: 1000 MG, BID (4 YEARS AGO)
     Route: 048

REACTIONS (1)
  - Cataract [Recovered/Resolved]

NARRATIVE: CASE EVENT DATE: 201807
